FAERS Safety Report 6534392-4 (Version None)
Quarter: 2010Q1

REPORT INFORMATION
  Report Type: 
  Country: None (occurrence: None)
  Receive Date: 20100108
  Receipt Date: 20100108
  Transmission Date: 20100710
  Serious: Yes (Hospitalization)
  Sender: FDA-Public Use
  Company Number: None

PATIENT
  Sex: Female
  Weight: 52.3 kg

DRUGS (6)
  1. CYCLOPHOSPHAMIDE [Suspect]
     Dosage: 120 MG
  2. DOXORUBICIN HYDROCHLORIDE [Suspect]
     Dosage: 16 MG
  3. ETOPOSIDE [Suspect]
     Dosage: 80 MG
  4. PREDNISONE [Suspect]
     Dosage: 1010 MG
  5. RITUXIMAB (MOAB C2B8 ANTI CD20 CHIMERIC) [Suspect]
     Dosage: 600 MG
  6. VINCRISTINE SULFATE [Suspect]
     Dosage: .64 MG

REACTIONS (7)
  - ADRENAL INSUFFICIENCY [None]
  - CONVULSION [None]
  - HYPOGLYCAEMIA [None]
  - HYPOKALAEMIA [None]
  - PANCYTOPENIA [None]
  - RESPIRATORY FAILURE [None]
  - UNRESPONSIVE TO STIMULI [None]
